FAERS Safety Report 19658147 (Version 5)
Quarter: 2025Q3

REPORT INFORMATION
  Report Type: Spontaneous
  Country: EU (occurrence: EU)
  Receive Date: 20210805
  Receipt Date: 20250709
  Transmission Date: 20251021
  Serious: Yes (Hospitalization, Other)
  Sender: AUROBINDO
  Company Number: EU-ELI_LILLY_AND_COMPANY-CZ202107006190

PATIENT
  Age: 34 Year
  Sex: Male
  Weight: 117 kg

DRUGS (16)
  1. OLANZAPINE [Suspect]
     Active Substance: OLANZAPINE
     Indication: Schizophrenia
     Route: 065
  2. OLANZAPINE [Suspect]
     Active Substance: OLANZAPINE
     Route: 065
  3. ARIPIPRAZOLE [Suspect]
     Active Substance: ARIPIPRAZOLE
     Indication: Schizophrenia
     Route: 065
  4. OLANZAPINE PAMOATE [Suspect]
     Active Substance: OLANZAPINE PAMOATE
     Indication: Schizophrenia
     Route: 065
  5. OLANZAPINE PAMOATE [Suspect]
     Active Substance: OLANZAPINE PAMOATE
     Route: 065
  6. OLANZAPINE PAMOATE [Suspect]
     Active Substance: OLANZAPINE PAMOATE
     Route: 030
  7. OLANZAPINE PAMOATE [Suspect]
     Active Substance: OLANZAPINE PAMOATE
     Route: 030
     Dates: end: 2018
  8. OLANZAPINE PAMOATE [Suspect]
     Active Substance: OLANZAPINE PAMOATE
     Route: 065
     Dates: start: 201504
  9. OLANZAPINE PAMOATE [Suspect]
     Active Substance: OLANZAPINE PAMOATE
     Route: 030
     Dates: start: 201504
  10. BREXPIPRAZOLE [Concomitant]
     Active Substance: BREXPIPRAZOLE
     Indication: Schizophrenia
     Route: 065
  11. BREXPIPRAZOLE [Concomitant]
     Active Substance: BREXPIPRAZOLE
     Dosage: 4 MILLIGRAM, ONCE A DAY
     Route: 065
  12. BREXPIPRAZOLE [Concomitant]
     Active Substance: BREXPIPRAZOLE
     Route: 065
  13. BREXPIPRAZOLE [Concomitant]
     Active Substance: BREXPIPRAZOLE
     Dosage: 2 MILLIGRAM, ONCE A DAY
     Route: 065
  14. SERTINDOLE [Concomitant]
     Active Substance: SERTINDOLE
     Indication: Schizophrenia
     Route: 065
  15. QUETIAPINE [Concomitant]
     Active Substance: QUETIAPINE
     Indication: Schizophrenia
     Route: 065
  16. CLOZAPINE [Concomitant]
     Active Substance: CLOZAPINE
     Indication: Schizophrenia
     Route: 065

REACTIONS (5)
  - Treatment noncompliance [Recovered/Resolved]
  - Schizophrenia [Unknown]
  - Weight increased [Recovering/Resolving]
  - Drug ineffective [Unknown]
  - Adverse drug reaction [Unknown]
